FAERS Safety Report 18256006 (Version 1)
Quarter: 2020Q3

REPORT INFORMATION
  Report Type: Other
  Country: US (occurrence: US)
  Receive Date: 20200910
  Receipt Date: 20200910
  Transmission Date: 20201103
  Serious: Yes (Other)
  Sender: FDA-Public Use
  Company Number: US-ROCHE-2673819

PATIENT
  Age: 58 Year
  Sex: Female

DRUGS (12)
  1. DEXTROMETHORPHAN?GUAIFENESIN [Concomitant]
     Active Substance: DEXTROMETHORPHAN\GUAIFENESIN
  2. PREDNISOLONE ACETATE. [Concomitant]
     Active Substance: PREDNISOLONE ACETATE
  3. DEXTRAN 70;HYPROMELLOSE [Concomitant]
  4. VALACYCLOVIR [Concomitant]
     Active Substance: VALACYCLOVIR HYDROCHLORIDE
  5. RANITIDINE. [Concomitant]
     Active Substance: RANITIDINE
  6. CYCLOBENZAPRINE. [Concomitant]
     Active Substance: CYCLOBENZAPRINE
  7. PREDNISONE. [Concomitant]
     Active Substance: PREDNISONE
  8. ALENDRONATE [Concomitant]
     Active Substance: ALENDRONATE SODIUM
  9. CELLCEPT [Suspect]
     Active Substance: MYCOPHENOLATE MOFETIL\MYCOPHENOLATE MOFETIL HYDROCHLORIDE
     Indication: LUPUS NEPHRITIS
     Route: 048
  10. ASPRIN [Concomitant]
     Active Substance: ASPIRIN
  11. PEG 3350 + ELECTROLYTES [Concomitant]
  12. LIDOCAINE. [Concomitant]
     Active Substance: LIDOCAINE

REACTIONS (9)
  - Intentional product use issue [Unknown]
  - Off label use [Unknown]
  - Pain [Recovering/Resolving]
  - Systemic lupus erythematosus [Recovering/Resolving]
  - Swelling [Recovering/Resolving]
  - Proteinuria [Unknown]
  - Blood pressure increased [Unknown]
  - Urine analysis abnormal [Unknown]
  - Weight decreased [Unknown]

NARRATIVE: CASE EVENT DATE: 202007
